FAERS Safety Report 10678511 (Version 1)
Quarter: 2014Q4

REPORT INFORMATION
  Report Type: Spontaneous
  Country: US (occurrence: None)
  Receive Date: 20141224
  Receipt Date: 20141224
  Transmission Date: 20150529
  Serious: No
  Sender: FDA-Public Use
  Company Number: None

PATIENT
  Age: 43 Year
  Sex: Female
  Weight: 54.43 kg

DRUGS (1)
  1. BEYOND BELIEF VITA C SPF 15 DAILY MOISTURE [Suspect]
     Active Substance: OCTINOXATE\OXYBENZONE
     Indication: SKIN DISORDER
     Dates: start: 20141208, end: 20141208

REACTIONS (8)
  - Application site erythema [None]
  - Application site swelling [None]
  - Application site exfoliation [None]
  - Application site pruritus [None]
  - Chemical injury [None]
  - Application site warmth [None]
  - Application site vesicles [None]
  - Application site pain [None]

NARRATIVE: CASE EVENT DATE: 20141208
